FAERS Safety Report 5506371-7 (Version None)
Quarter: 2007Q4

REPORT INFORMATION
  Report Type: 
  Country: None (occurrence: None)
  Receive Date: 20071105
  Receipt Date: 20071025
  Transmission Date: 20080405
  Serious: Yes (Hospitalization)
  Sender: FDA-Public Use
  Company Number: JP-JNJFOC-20071005465

PATIENT
  Sex: Female

DRUGS (6)
  1. CRAVIT [Suspect]
     Indication: PERITONSILLAR ABSCESS
     Route: 048
  2. MEIACT [Suspect]
     Indication: PERITONSILLAR ABSCESS
     Route: 048
  3. SOLU-CORTEF [Concomitant]
     Route: 042
  4. SOLU-CORTEF [Concomitant]
     Indication: PERITONSILLAR ABSCESS
     Route: 042
  5. DALACIN S [Concomitant]
     Route: 042
  6. ROCEPHIN [Concomitant]
     Route: 042

REACTIONS (2)
  - LOSS OF CONSCIOUSNESS [None]
  - RASH GENERALISED [None]
